FAERS Safety Report 9671866 (Version 1)
Quarter: 2013Q4

REPORT INFORMATION
  Report Type: Spontaneous
  Country: US (occurrence: None)
  Receive Date: 20131105
  Receipt Date: 20131105
  Transmission Date: 20140711
  Serious: Yes (Hospitalization)
  Sender: FDA-Public Use
  Company Number: None

PATIENT
  Age: 74 Year
  Sex: Female
  Weight: 80 kg

DRUGS (6)
  1. XARELTO [Suspect]
     Indication: ATRIAL FIBRILLATION
     Route: 048
  2. AMIODARONE [Concomitant]
  3. COLACE [Concomitant]
  4. LOPRESSOR [Concomitant]
  5. OMEPRAZOLE [Concomitant]
  6. CRESTOR [Concomitant]

REACTIONS (1)
  - Lower gastrointestinal haemorrhage [None]
